FAERS Safety Report 14343644 (Version 2)
Quarter: 2018Q1

REPORT INFORMATION
  Report Type: Spontaneous
  Country: PL (occurrence: PL)
  Receive Date: 20180102
  Receipt Date: 20180205
  Transmission Date: 20180509
  Serious: Yes (Hospitalization)
  Sender: FDA-Public Use
  Company Number: PL-MYLANLABS-2017M1083637

PATIENT
  Age: 34 Year
  Sex: Female

DRUGS (15)
  1. FLUOXETINE [Suspect]
     Active Substance: FLUOXETINE HYDROCHLORIDE
     Indication: VOMITING
     Dosage: 20 MG, QD
     Route: 048
  2. FLUOXETINE [Interacting]
     Active Substance: FLUOXETINE HYDROCHLORIDE
     Dosage: 40 MG, QD
     Route: 048
  3. INSULIN [Concomitant]
     Active Substance: INSULIN NOS
     Indication: DIABETES MELLITUS
     Dosage: UNK
  4. HYDROXYZINE [Interacting]
     Active Substance: HYDROXYZINE HYDROCHLORIDE
     Indication: DEPRESSIVE SYMPTOM
     Dosage: 75 MG, QD
  5. FLUOXETINE [Interacting]
     Active Substance: FLUOXETINE HYDROCHLORIDE
     Indication: BINGE EATING
     Dosage: 20 MG, QD
     Route: 048
  6. FLUOXETINE [Interacting]
     Active Substance: FLUOXETINE HYDROCHLORIDE
     Indication: BULIMIA NERVOSA
     Dosage: 60 MG, QD
     Route: 048
  7. METFORMIN [Concomitant]
     Active Substance: METFORMIN HYDROCHLORIDE
     Indication: DIABETES MELLITUS
     Dosage: UNK
  8. FLUOXETINE [Interacting]
     Active Substance: FLUOXETINE HYDROCHLORIDE
     Dosage: 60 MG, QD
     Route: 048
  9. FLUOXETINE [Interacting]
     Active Substance: FLUOXETINE HYDROCHLORIDE
     Indication: DEPRESSIVE SYMPTOM
     Dosage: 40 MG, QD
     Route: 048
  10. FLUOXETINE [Interacting]
     Active Substance: FLUOXETINE HYDROCHLORIDE
     Dosage: 20 MG, QD
     Route: 048
  11. FLUOXETINE [Interacting]
     Active Substance: FLUOXETINE HYDROCHLORIDE
     Dosage: 60 MG, UNK
     Route: 048
  12. FLUOXETINE [Interacting]
     Active Substance: FLUOXETINE HYDROCHLORIDE
     Dosage: 40 MG, UNK
     Route: 048
  13. AMITRIPTYLINE [Interacting]
     Active Substance: AMITRIPTYLINE
     Indication: DEPRESSIVE SYMPTOM
     Dosage: 25 MG, UNK
     Route: 065
  14. AMITRIPTYLINE [Interacting]
     Active Substance: AMITRIPTYLINE
     Dosage: 50 MG, QD
  15. HYDROXYZINE [Interacting]
     Active Substance: HYDROXYZINE HYDROCHLORIDE
     Indication: DEPRESSIVE SYMPTOM

REACTIONS (25)
  - Binge eating [Not Recovered/Not Resolved]
  - Hypoglycaemia [Unknown]
  - Poor quality sleep [Unknown]
  - Tearfulness [Not Recovered/Not Resolved]
  - Alanine aminotransferase increased [Unknown]
  - Drug interaction [Unknown]
  - Drug ineffective [Unknown]
  - Underdose [Unknown]
  - Weight increased [Unknown]
  - Blood glucose increased [Unknown]
  - Body mass index increased [Unknown]
  - Vomiting [Not Recovered/Not Resolved]
  - Affect lability [Not Recovered/Not Resolved]
  - Dysphoria [Not Recovered/Not Resolved]
  - Anxiety [Not Recovered/Not Resolved]
  - Electrocardiogram QT prolonged [Unknown]
  - Fear [Not Recovered/Not Resolved]
  - Drug resistance [Unknown]
  - Irritability [Not Recovered/Not Resolved]
  - Insomnia [Unknown]
  - Diet failure [Unknown]
  - Hyperglycaemia [Unknown]
  - Tension [Not Recovered/Not Resolved]
  - Increased appetite [Not Recovered/Not Resolved]
  - Aspartate aminotransferase increased [Unknown]
